FAERS Safety Report 25489724 (Version 1)
Quarter: 2025Q2

REPORT INFORMATION
  Report Type: Spontaneous
  Country: US (occurrence: US)
  Receive Date: 20250627
  Receipt Date: 20250627
  Transmission Date: 20250716
  Serious: No
  Sender: PFIZER
  Company Number: US-PFIZER INC-202500129507

PATIENT
  Age: 68 Year
  Sex: Female
  Weight: 61.23 kg

DRUGS (1)
  1. METHOTREXATE SODIUM [Suspect]
     Active Substance: METHOTREXATE SODIUM

REACTIONS (2)
  - Injection site bruising [Unknown]
  - Injection site erythema [Unknown]
